FAERS Safety Report 5118471-4 (Version None)
Quarter: 2006Q3

REPORT INFORMATION
  Report Type: 
  Country: None (occurrence: None)
  Receive Date: 20060926
  Receipt Date: 20060915
  Transmission Date: 20061208
  Serious: Yes (Hospitalization)
  Sender: FDA-Public Use
  Company Number: 147713USA

PATIENT
  Age: 77 Year
  Sex: Female

DRUGS (5)
  1. FLUOROURACIL [Suspect]
     Indication: COLON CANCER
     Dosage: (270 MG/M2), INTRAVENOUS BOLUS
     Route: 040
     Dates: start: 20060731, end: 20060731
  2. OXALIPLATIN [Suspect]
     Indication: COLON CANCER
     Dosage: (85 MG/M2, INTRAVENOUS BOLUS)
     Route: 040
     Dates: start: 20060731, end: 20060731
  3. FOLINIC ACID [Suspect]
     Dosage: (400 MG/M2)
     Dates: start: 20060724, end: 20060724
  4. CETUXIMAB [Suspect]
     Indication: COLON CANCER
     Dosage: (250 MG/M2, WK), INTRAVENOUS BOLUS
     Route: 040
     Dates: start: 20060724, end: 20060724
  5. BEVACIZUMAB [Suspect]
     Indication: COLON CANCER
     Dosage: INTRAVENOUS BOLUS
     Route: 040
     Dates: start: 20060717, end: 20060717

REACTIONS (8)
  - CATHETER RELATED INFECTION [None]
  - HAEMOPTYSIS [None]
  - LUNG DISORDER [None]
  - PLATELET COUNT DECREASED [None]
  - PNEUMOTHORAX [None]
  - PSEUDOMONAL SEPSIS [None]
  - SEPTIC EMBOLUS [None]
  - TRANSIENT ISCHAEMIC ATTACK [None]
